FAERS Safety Report 7936008-9 (Version None)
Quarter: 2011Q4

REPORT INFORMATION
  Report Type: 
  Country: None (occurrence: None)
  Receive Date: 20111123
  Receipt Date: 20111116
  Transmission Date: 20120403
  Serious: Yes (Congenital Anomaly, Other)
  Sender: FDA-Public Use
  Company Number: US-JNJFOC-20111109043

PATIENT
  Sex: Female

DRUGS (1)
  1. TOPAMAX [Suspect]
     Indication: FOETAL EXPOSURE DURING PREGNANCY
     Route: 064
     Dates: start: 20010101, end: 20070101

REACTIONS (10)
  - ENLARGED CLITORIS [None]
  - PATENT DUCTUS ARTERIOSUS [None]
  - NASAL SEPTUM DEVIATION [None]
  - DEVELOPMENTAL DELAY [None]
  - MALOCCLUSION [None]
  - CONGENITAL CENTRAL NERVOUS SYSTEM ANOMALY [None]
  - ATTENTION DEFICIT/HYPERACTIVITY DISORDER [None]
  - BRONCHOPULMONARY DYSPLASIA [None]
  - SLEEP APNOEA SYNDROME [None]
  - CLEFT LIP AND PALATE [None]
